FAERS Safety Report 12666031 (Version 1)
Quarter: 2016Q3

REPORT INFORMATION
  Report Type: Spontaneous
  Country: US (occurrence: US)
  Receive Date: 20160818
  Receipt Date: 20160818
  Transmission Date: 20161109
  Serious: No
  Sender: FDA-Public Use
  Company Number: US-JAZZ-2016-US-005492

PATIENT
  Sex: Male

DRUGS (19)
  1. XYREM [Suspect]
     Active Substance: SODIUM OXYBATE
     Indication: NARCOLEPSY
     Dosage: 2.25 G, BID
     Route: 048
     Dates: start: 200611, end: 201103
  2. XYREM [Suspect]
     Active Substance: SODIUM OXYBATE
     Dosage: 3 G, BID
     Route: 048
     Dates: start: 201103, end: 201201
  3. MULTIVITAMINS [Concomitant]
     Active Substance: VITAMINS
  4. CALCIUM + VITAMIN D [Concomitant]
     Active Substance: CALCIUM\VITAMIN D
  5. DOXYCYCLINE HYCLATE. [Concomitant]
     Active Substance: DOXYCYCLINE HYCLATE
  6. CLINDAMYCIN/BENZOYL PEROXIDE [Concomitant]
  7. NASONEX [Concomitant]
     Active Substance: MOMETASONE FUROATE
  8. SONATA [Concomitant]
     Active Substance: ZALEPLON
  9. PROVIGIL [Concomitant]
     Active Substance: MODAFINIL
  10. XYREM [Suspect]
     Active Substance: SODIUM OXYBATE
     Dosage: 3 G, BID
     Route: 048
     Dates: start: 201304, end: 201504
  11. DESONIDE. [Concomitant]
     Active Substance: DESONIDE
  12. NUVIGIL [Concomitant]
     Active Substance: ARMODAFINIL
  13. XYREM [Suspect]
     Active Substance: SODIUM OXYBATE
     Dosage: 3 G, BID
     Route: 048
     Dates: start: 201509
  14. CIALIS [Concomitant]
     Active Substance: TADALAFIL
  15. ECSTASY [Concomitant]
     Active Substance: METHYLENEDIOXYMETHAMPHETAMINE
  16. XYREM [Suspect]
     Active Substance: SODIUM OXYBATE
     Dosage: 2.25 G, BID
     Route: 048
     Dates: start: 201504, end: 201508
  17. COLLAGEN RENEW WITH VITAMIN C [Concomitant]
  18. VITAMIN C [Concomitant]
     Active Substance: ASCORBIC ACID
  19. CLOBETASOL [Concomitant]
     Active Substance: CLOBETASOL

REACTIONS (1)
  - Intentional product use issue [Unknown]
